FAERS Safety Report 15831176 (Version 1)
Quarter: 2019Q1

REPORT INFORMATION
  Report Type: Spontaneous
  Country: US (occurrence: US)
  Receive Date: 20190116
  Receipt Date: 20190116
  Transmission Date: 20190417
  Serious: No
  Sender: FDA-Public Use
  Company Number: US-009507513-1812USA008857

PATIENT
  Age: 7 Year
  Sex: Female

DRUGS (2)
  1. SINGULAIR [Suspect]
     Active Substance: MONTELUKAST SODIUM
     Dosage: 5MG DAILY
     Route: 048
     Dates: start: 2018
  2. SINGULAIR [Suspect]
     Active Substance: MONTELUKAST SODIUM
     Indication: PRODUCT USED FOR UNKNOWN INDICATION
     Dosage: 10MG DAILY
     Route: 048
     Dates: start: 201811, end: 2018

REACTIONS (5)
  - Ocular hyperaemia [Not Recovered/Not Resolved]
  - Wrong product administered [Unknown]
  - Visual impairment [Not Recovered/Not Resolved]
  - Accidental overdose [Unknown]
  - Product dispensing error [Unknown]

NARRATIVE: CASE EVENT DATE: 2018
